FAERS Safety Report 12866814 (Version 2)
Quarter: 2016Q4

REPORT INFORMATION
  Report Type: Spontaneous
  Country: US (occurrence: US)
  Receive Date: 20161020
  Receipt Date: 20161026
  Transmission Date: 20170207
  Serious: No
  Sender: FDA-Public Use
  Company Number: US-ACTELION-A-US2016-144117

PATIENT
  Age: 64 Year
  Sex: Female

DRUGS (3)
  1. OPSUMIT [Suspect]
     Active Substance: MACITENTAN
     Indication: PULMONARY ARTERIAL HYPERTENSION
     Dosage: 10 MG, QD
     Route: 048
     Dates: start: 20150917
  2. ZAROXOLYN [Concomitant]
     Active Substance: METOLAZONE
  3. ADEMPAS [Concomitant]
     Active Substance: RIOCIGUAT
     Dosage: UNK
     Dates: start: 20161007

REACTIONS (5)
  - Palpitations [Unknown]
  - Weight increased [Unknown]
  - Fluid retention [Unknown]
  - Abdominal distension [Unknown]
  - Headache [Unknown]
